FAERS Safety Report 14518926 (Version 1)
Quarter: 2018Q1

REPORT INFORMATION
  Report Type: Spontaneous
  Country: US (occurrence: US)
  Receive Date: 20180209
  Receipt Date: 20180209
  Transmission Date: 20180509
  Serious: Yes (Other)
  Sender: FDA-Public Use
  Company Number: None

PATIENT
  Sex: Female
  Weight: 102.6 kg

DRUGS (10)
  1. LISINOPRIL. [Concomitant]
     Active Substance: LISINOPRIL
  2. VENTORIL [Concomitant]
  3. BAYER ASPIRIN [Concomitant]
     Active Substance: ASPIRIN
  4. CLOPIDOGREL [Concomitant]
     Active Substance: CLOPIDOGREL BISULFATE
  5. ASPIRIN. [Concomitant]
     Active Substance: ASPIRIN
  6. PRAVASTATIN. [Concomitant]
     Active Substance: PRAVASTATIN
  7. NITROGLYCERIN. [Concomitant]
     Active Substance: NITROGLYCERIN
  8. CLOPIDOGREL [Suspect]
     Active Substance: CLOPIDOGREL BISULFATE
     Indication: ANTICOAGULANT THERAPY
     Dosage: ?          QUANTITY:90 TABLET(S);?
     Route: 048
     Dates: start: 20170917, end: 20171215
  9. COREG [Concomitant]
     Active Substance: CARVEDILOL
  10. HYDROCHLOROTHIAZIDE. [Concomitant]
     Active Substance: HYDROCHLOROTHIAZIDE

REACTIONS (7)
  - Vision blurred [None]
  - Wrong drug administered [None]
  - Muscular weakness [None]
  - Drug dispensing error [None]
  - Chest discomfort [None]
  - Weight increased [None]
  - Fatigue [None]

NARRATIVE: CASE EVENT DATE: 20171226
